FAERS Safety Report 6958339-1 (Version None)
Quarter: 2010Q3

REPORT INFORMATION
  Report Type: 
  Country: None (occurrence: None)
  Receive Date: 20100831
  Receipt Date: 20100823
  Transmission Date: 20110219
  Serious: Yes (Hospitalization)
  Sender: FDA-Public Use
  Company Number: B0672166A

PATIENT
  Age: 28 Year
  Sex: Male

DRUGS (1)
  1. LAMOTRIGINE [Suspect]
     Indication: BIPOLAR DISORDER
     Route: 065

REACTIONS (13)
  - ALANINE AMINOTRANSFERASE INCREASED [None]
  - C-REACTIVE PROTEIN INCREASED [None]
  - ERYTHEMA [None]
  - FIBRIN D DIMER INCREASED [None]
  - GENERAL PHYSICAL HEALTH DETERIORATION [None]
  - HYPOKALAEMIA [None]
  - HYPOPROTEINAEMIA [None]
  - MUCOSAL ULCERATION [None]
  - NIKOLSKY'S SIGN [None]
  - OEDEMA [None]
  - SKIN EXFOLIATION [None]
  - SKIN NECROSIS [None]
  - TOXIC EPIDERMAL NECROLYSIS [None]
